FAERS Safety Report 9911129 (Version 1)
Quarter: 2014Q1

REPORT INFORMATION
  Report Type: Spontaneous
  Country: US (occurrence: US)
  Receive Date: 20140219
  Receipt Date: 20140219
  Transmission Date: 20141002
  Serious: No
  Sender: FDA-Public Use
  Company Number: US-GILEAD-2012-0052132

PATIENT
  Age: 54 Year
  Sex: Female

DRUGS (2)
  1. LETAIRIS [Suspect]
     Indication: PRODUCT USED FOR UNKNOWN INDICATION
     Dosage: 10 MG, UNK
     Route: 048
     Dates: start: 20071012
  2. VENTAVIS [Concomitant]

REACTIONS (4)
  - Insomnia [Unknown]
  - Dyspepsia [Unknown]
  - Heart rate increased [Unknown]
  - Paranasal sinus hypersecretion [Unknown]
